FAERS Safety Report 13268505 (Version 1)
Quarter: 2017Q1

REPORT INFORMATION
  Report Type: Spontaneous
  Country: None (occurrence: US)
  Receive Date: 20170224
  Receipt Date: 20170224
  Transmission Date: 20170428
  Serious: Yes (Hospitalization)
  Sender: FDA-Public Use
  Company Number: None

PATIENT
  Age: 57 Year
  Sex: Female
  Weight: 56 kg

DRUGS (7)
  1. YERVOY [Suspect]
     Active Substance: IPILIMUMAB
  2. REFRESH [Concomitant]
     Active Substance: UNSPECIFIED INGREDIENT
  3. DOXYCYCLINE. [Concomitant]
     Active Substance: DOXYCYCLINE
  4. LEVSIN [Concomitant]
     Active Substance: HYOSCYAMINE SULFATE
  5. ZOFRAN [Concomitant]
     Active Substance: ONDANSETRON HYDROCHLORIDE
  6. ATIVAN [Concomitant]
     Active Substance: LORAZEPAM
  7. METROGEL [Concomitant]
     Active Substance: METRONIDAZOLE

REACTIONS (5)
  - Unresponsive to stimuli [None]
  - Brain neoplasm [None]
  - Hydrocephalus [None]
  - Melanoma recurrent [None]
  - Blood corticotrophin decreased [None]

NARRATIVE: CASE EVENT DATE: 20170221
